FAERS Safety Report 6680256-5 (Version None)
Quarter: 2010Q2

REPORT INFORMATION
  Report Type: 
  Country: None (occurrence: None)
  Receive Date: 20100413
  Receipt Date: 20100403
  Transmission Date: 20101027
  Serious: Yes (Congenital Anomaly)
  Sender: FDA-Public Use
  Company Number: RO-ABBOTT-10P-135-0636514-00

PATIENT
  Age: 1 Day
  Sex: Male

DRUGS (1)
  1. VALPROATE SODIUM [Suspect]
     Indication: DRUG EXPOSURE DURING PREGNANCY

REACTIONS (14)
  - CONGENITAL FOOT MALFORMATION [None]
  - CONGENITAL HAIR DISORDER [None]
  - CONGENITAL HAND MALFORMATION [None]
  - CONGENITAL MUSCULOSKELETAL ANOMALY [None]
  - CONGENITAL NOSE MALFORMATION [None]
  - DRUG EXPOSURE DURING PREGNANCY [None]
  - DYSMORPHISM [None]
  - HYPERTELORISM OF ORBIT [None]
  - HYPOTONIA NEONATAL [None]
  - LOW SET EARS [None]
  - MADAROSIS [None]
  - MICROGNATHIA [None]
  - PROMINENT EPICANTHAL FOLDS [None]
  - SKULL MALFORMATION [None]
